FAERS Safety Report 8119124-0 (Version None)
Quarter: 2012Q1

REPORT INFORMATION
  Report Type: 
  Country: None (occurrence: None)
  Receive Date: 20120207
  Receipt Date: 20120207
  Transmission Date: 20120608
  Serious: Yes (Death)
  Sender: FDA-Public Use
  Company Number: None

PATIENT
  Age: 57 Year
  Sex: Male
  Weight: 113.39 kg

DRUGS (2)
  1. SIMVASTATIN [Concomitant]
     Indication: ARTERIOSCLEROSIS
     Dosage: 10 MG
     Route: 048
  2. TRILIPIX [Suspect]
     Indication: HYPERLIPIDAEMIA
     Dosage: 135 MG
     Route: 048

REACTIONS (3)
  - PANCREATITIS NECROTISING [None]
  - ACUTE RESPIRATORY DISTRESS SYNDROME [None]
  - RENAL FAILURE ACUTE [None]
